FAERS Safety Report 22329709 (Version 1)
Quarter: 2023Q2

REPORT INFORMATION
  Report Type: Spontaneous
  Country: US (occurrence: None)
  Receive Date: 20230517
  Receipt Date: 20230517
  Transmission Date: 20230722
  Serious: No
  Sender: FDA-Public Use
  Company Number: US-ROCHE-3300576

PATIENT
  Age: 67 Year

DRUGS (4)
  1. ACTEMRA [Suspect]
     Active Substance: TOCILIZUMAB
     Indication: Product used for unknown indication
     Route: 042
     Dates: start: 20171207
  2. ACTEMRA [Suspect]
     Active Substance: TOCILIZUMAB
     Route: 042
     Dates: start: 20180116
  3. ACTEMRA [Suspect]
     Active Substance: TOCILIZUMAB
     Route: 042
     Dates: start: 20230118
  4. SOLU-MEDROL [Concomitant]
     Active Substance: METHYLPREDNISOLONE SODIUM SUCCINATE

REACTIONS (14)
  - Pruritus [Unknown]
  - Chest pain [Unknown]
  - Dizziness [Unknown]
  - Ear congestion [Unknown]
  - Sneezing [Unknown]
  - Rhinorrhoea [Unknown]
  - Contusion [Unknown]
  - Back pain [Unknown]
  - Musculoskeletal pain [Unknown]
  - Acne [Not Recovered/Not Resolved]
  - Urticaria [Unknown]
  - Cough [Unknown]
  - Skin discolouration [Unknown]
  - Eczema [Unknown]

NARRATIVE: CASE EVENT DATE: 20230126
